FAERS Safety Report 10329551 (Version 1)
Quarter: 2014Q3

REPORT INFORMATION
  Report Type: Spontaneous
  Country: US (occurrence: None)
  Receive Date: 20140718
  Receipt Date: 20140718
  Transmission Date: 20150326
  Serious: Yes (Death, Hospitalization)
  Sender: FDA-Public Use
  Company Number: None

PATIENT
  Age: 54 Year
  Sex: Male
  Weight: 137.89 kg

DRUGS (1)
  1. TESTOSTERONE 200 MG FOR 90 DAYS [Suspect]
     Active Substance: TESTOSTERONE
     Indication: BLOOD TESTOSTERONE ABNORMAL
     Dosage: INTO THE MUSCLE
     Dates: end: 20140426

REACTIONS (2)
  - Cardiac failure congestive [None]
  - Chest pain [None]

NARRATIVE: CASE EVENT DATE: 20140426
